FAERS Safety Report 9285683 (Version 1)
Quarter: 2013Q2

REPORT INFORMATION
  Report Type: Spontaneous
  Country: US (occurrence: None)
  Receive Date: 20130510
  Receipt Date: 20130510
  Transmission Date: 20140414
  Serious: Yes (Other)
  Sender: FDA-Public Use
  Company Number: None

PATIENT
  Age: 77 Year
  Sex: Male
  Weight: 62.14 kg

DRUGS (1)
  1. CHLORAPREP [Suspect]

REACTIONS (2)
  - Laceration [None]
  - Product packaging issue [None]
